FAERS Safety Report 21273363 (Version 3)
Quarter: 2022Q4

REPORT INFORMATION
  Report Type: Report from Study
  Country: US (occurrence: US)
  Receive Date: 20220831
  Receipt Date: 20221103
  Transmission Date: 20230112
  Serious: Yes (Other)
  Sender: FDA-Public Use
  Company Number: US-HORIZON THERAPEUTICS-HZN-2022-005753

PATIENT

DRUGS (2)
  1. TEPEZZA [Suspect]
     Active Substance: TEPROTUMUMAB-TRBW
     Indication: Endocrine ophthalmopathy
     Dosage: FIRST INFUSION
     Route: 042
     Dates: start: 20220705
  2. TEPEZZA [Suspect]
     Active Substance: TEPROTUMUMAB-TRBW
     Dosage: UNKNOWN INFUSION
     Route: 042
     Dates: start: 20220823

REACTIONS (9)
  - Loss of consciousness [Unknown]
  - Locked-in syndrome [Unknown]
  - General physical health deterioration [Unknown]
  - Disorientation [Unknown]
  - Penile discharge [Unknown]
  - Weight decreased [Unknown]
  - Blood glucose increased [Unknown]
  - Ocular hyperaemia [Unknown]
  - Photophobia [Unknown]

NARRATIVE: CASE EVENT DATE: 20220101
